FAERS Safety Report 19729220 (Version 5)
Quarter: 2021Q3

REPORT INFORMATION
  Report Type: Report from Study
  Country: US (occurrence: US)
  Receive Date: 20210820
  Receipt Date: 20210921
  Transmission Date: 20211014
  Serious: Yes (Other)
  Sender: FDA-Public Use
  Company Number: NVSC2021US183187

PATIENT
  Sex: Female

DRUGS (1)
  1. MAYZENT [Suspect]
     Active Substance: SIPONIMOD
     Indication: MULTIPLE SCLEROSIS
     Dosage: 1 MG, QD
     Route: 048

REACTIONS (10)
  - Illness [Recovered/Resolved]
  - Heart rate decreased [Recovered/Resolved]
  - Gastrointestinal disorder [Recovered/Resolved]
  - Incorrect dose administered [Unknown]
  - Syncope [Recovered/Resolved]
  - Product dose omission issue [Unknown]
  - Nausea [Recovered/Resolved]
  - Hypertension [Recovered/Resolved]
  - Extra dose administered [Unknown]
  - Headache [Recovered/Resolved]
